FAERS Safety Report 7020963-8 (Version None)
Quarter: 2010Q3

REPORT INFORMATION
  Report Type: 
  Country: None (occurrence: None)
  Receive Date: 20100929
  Receipt Date: 20100216
  Transmission Date: 20110219
  Serious: Yes (Other)
  Sender: FDA-Public Use
  Company Number: A0844740A

PATIENT
  Age: 59 Year
  Sex: Male

DRUGS (3)
  1. RELENZA [Suspect]
     Indication: INFLUENZA
     Route: 055
     Dates: start: 20100208, end: 20100209
  2. COREG [Concomitant]
  3. DIOVAN [Concomitant]

REACTIONS (1)
  - HALLUCINATION [None]
